FAERS Safety Report 5937866-X (Version None)
Quarter: 2008Q4

REPORT INFORMATION
  Report Type: 
  Country: None (occurrence: None)
  Receive Date: 20081031
  Receipt Date: 20081023
  Transmission Date: 20090506
  Serious: Yes (Hospitalization, Other)
  Sender: FDA-Public Use
  Company Number: FR-PFIZER INC-2008090123

PATIENT
  Age: 62 Year
  Sex: Male

DRUGS (1)
  1. TAHOR [Suspect]
     Indication: MYOCARDIAL INFARCTION
     Dosage: TEXT:80 MG
     Dates: start: 20080101, end: 20080722

REACTIONS (3)
  - CYTOLYTIC HEPATITIS [None]
  - GAMMA-GLUTAMYLTRANSFERASE INCREASED [None]
  - TRANSAMINASES INCREASED [None]
